FAERS Safety Report 6239051-3 (Version None)
Quarter: 2009Q2

REPORT INFORMATION
  Report Type: 
  Country: None (occurrence: None)
  Receive Date: 20090617
  Receipt Date: 20090617
  Transmission Date: 20091009
  Serious: Yes (Hospitalization)
  Sender: FDA-Public Use
  Company Number: None

PATIENT
  Age: 71 Year
  Sex: Female
  Weight: 102 kg

DRUGS (1)
  1. ACYCLOVIR SODIUM [Suspect]
     Indication: ENCEPHALITIS HERPES
     Dosage: 1 GRAM EVERY 8 HOURS IV
     Route: 042
     Dates: start: 20090610, end: 20090612

REACTIONS (2)
  - BLOOD CREATININE INCREASED [None]
  - NEPHROPATHY TOXIC [None]
